FAERS Safety Report 4960992-9 (Version None)
Quarter: 2006Q2

REPORT INFORMATION
  Report Type: 
  Country: None (occurrence: None)
  Receive Date: 20060403
  Receipt Date: 20030721
  Transmission Date: 20061013
  Serious: Yes (Other)
  Sender: FDA-Public Use
  Company Number: RU-AVENTIS-200317165GDDC

PATIENT
  Age: 48 Year
  Sex: Male
  Weight: 100 kg

DRUGS (6)
  1. UNFRACTIONATED HEPARIN [Suspect]
     Indication: MYOCARDIAL INFARCTION
     Dosage: DOSE: ENOX/PLACEBO BOLUS 30 MG
     Route: 040
     Dates: start: 20030710, end: 20030710
  2. UNFRACTIONATED HEPARIN [Suspect]
     Dosage: DOSE: HEP/PLACEBO BOLUS 4000 UNITS
     Route: 040
     Dates: start: 20030710, end: 20030710
  3. UNFRACTIONATED HEPARIN [Suspect]
     Dosage: DOSE: ENOX/PLACEBO 100 MG
     Route: 058
     Dates: start: 20030710, end: 20030717
  4. UNFRACTIONATED HEPARIN [Suspect]
     Dosage: DOSE: HEP/PLACEBO 24000 U/DAY; FREQUENCY: CONTINUOUS
     Route: 041
     Dates: start: 20030710, end: 20030712
  5. ASPIRIN [Suspect]
     Indication: MYOCARDIAL INFARCTION
     Route: 048
     Dates: start: 20030710
  6. ACTIVASE [Suspect]
     Indication: MYOCARDIAL INFARCTION
     Route: 042
     Dates: start: 20030710, end: 20030710

REACTIONS (1)
  - INTRACARDIAC THROMBUS [None]
